FAERS Safety Report 8922327 (Version 3)
Quarter: 2013Q1

REPORT INFORMATION
  Report Type: Spontaneous
  Country: US (occurrence: US)
  Receive Date: 20121123
  Receipt Date: 20130118
  Transmission Date: 20140127
  Serious: Yes (Other)
  Sender: FDA-Public Use
  Company Number: US-PFIZER INC-2012265316

PATIENT
  Age: 44 Year
  Sex: Female
  Weight: 68.03 kg

DRUGS (1)
  1. LYRICA [Suspect]
     Dosage: 225 MG, UNK
     Dates: start: 20080101

REACTIONS (8)
  - Drug withdrawal syndrome [Unknown]
  - Calcium deficiency [Unknown]
  - Hypersensitivity [Unknown]
  - Pruritus generalised [Unknown]
  - Pain [Unknown]
  - Insomnia [Unknown]
  - Nightmare [Unknown]
  - Product physical issue [Unknown]
